FAERS Safety Report 8941921 (Version 1)
Quarter: 2012Q4

REPORT INFORMATION
  Report Type: 
  Country: DE (occurrence: DE)
  Receive Date: 20121130
  Receipt Date: 20121130
  Transmission Date: 20130627
  Serious: Yes (Other)
  Sender: FDA-Public Use
  Company Number: DE-AMGEN-DEUSP2012060605

PATIENT
  Sex: Female

DRUGS (4)
  1. XGEVA [Suspect]
     Indication: PRODUCT USED FOR UNKNOWN INDICATION
     Dosage: 120 mg, qmo
  2. FASLODEX                           /01285001/ [Concomitant]
     Indication: BREAST CANCER
     Dosage: 250 mg, qmo
  3. EXEMESTAN [Concomitant]
  4. AFINITOR [Concomitant]

REACTIONS (2)
  - Metastases to liver [Unknown]
  - Liver function test abnormal [Unknown]
